FAERS Safety Report 7472877-7 (Version None)
Quarter: 2011Q2

REPORT INFORMATION
  Report Type: 
  Country: None (occurrence: None)
  Receive Date: 20110503
  Receipt Date: 20110421
  Transmission Date: 20111010
  Serious: No
  Sender: FDA-Public Use
  Company Number: US-1185636

PATIENT
  Age: 29 Year
  Sex: Female
  Weight: 83.9154 kg

DRUGS (3)
  1. PATANASE [Suspect]
     Indication: MULTIPLE ALLERGIES
     Dosage: (1-2 SPRAYS IN EACH NOSTIL BID PRN NASAL)
     Route: 045
     Dates: start: 20110325, end: 20110331
  2. PATANASE [Suspect]
     Indication: NASAL INFLAMMATION
     Dosage: (1-2 SPRAYS IN EACH NOSTIL BID PRN NASAL)
     Route: 045
     Dates: start: 20110325, end: 20110331
  3. ORTHO TRI-CYCLEN [Concomitant]

REACTIONS (2)
  - EMOTIONAL DISORDER [None]
  - DEPRESSED MOOD [None]
